FAERS Safety Report 4666268-1 (Version None)
Quarter: 2005Q2

REPORT INFORMATION
  Report Type: 
  Country: None (occurrence: None)
  Receive Date: 20050518
  Receipt Date: 20050504
  Transmission Date: 20051028
  Serious: Yes (Other)
  Sender: FDA-Public Use
  Company Number: 230008M05BEL

PATIENT
  Age: 29 Year
  Sex: Male
  Weight: 87 kg

DRUGS (6)
  1. REBIF [Suspect]
     Indication: MULTIPLE SCLEROSIS
     Dosage: 22 MCG, 3 IN 1 WEEKS SUBCUTANEOUS; 44 MCG, 3 IN 1 WEEKS, SUBCUTANEOUS
     Route: 058
     Dates: start: 20010101, end: 20030801
  2. REBIF [Suspect]
     Indication: MULTIPLE SCLEROSIS
     Dosage: 22 MCG, 3 IN 1 WEEKS SUBCUTANEOUS; 44 MCG, 3 IN 1 WEEKS, SUBCUTANEOUS
     Route: 058
     Dates: start: 20030801
  3. PANTOPRAZOLE SODIUM [Concomitant]
  4. SELENIUM TRACE METAL ADDITIVE [Concomitant]
  5. CALCIUM D3  STADA [Concomitant]
  6. ESCITALOPRAM OXALATE [Concomitant]

REACTIONS (5)
  - HEPATIC LESION [None]
  - HEPATITIS A ANTIBODY POSITIVE [None]
  - HEPATITIS B ANTIBODY POSITIVE [None]
  - HEREDITARY HAEMOCHROMATOSIS [None]
  - SERUM FERRITIN INCREASED [None]
